FAERS Safety Report 4624881-1 (Version None)
Quarter: 2005Q2

REPORT INFORMATION
  Report Type: 
  Country: None (occurrence: None)
  Receive Date: 20050325
  Receipt Date: 20050201
  Transmission Date: 20051028
  Serious: No
  Sender: FDA-Public Use
  Company Number: USA050187825

PATIENT
  Age: 80 Year
  Sex: Female

DRUGS (2)
  1. FORTEO [Suspect]
     Indication: OSTEOPOROSIS
     Dosage: 20 UG/1 DAY
     Dates: start: 20040107
  2. CALCIUM GLUCONATE [Concomitant]

REACTIONS (8)
  - ARTHRALGIA [None]
  - ARTHRITIS [None]
  - BACK PAIN [None]
  - CAPILLARY DISORDER [None]
  - FEELING ABNORMAL [None]
  - INJECTION SITE ERYTHEMA [None]
  - INJECTION SITE HAEMORRHAGE [None]
  - INJECTION SITE PAIN [None]
